FAERS Safety Report 8405054-3 (Version None)
Quarter: 2012Q2

REPORT INFORMATION
  Report Type: 
  Country: None (occurrence: None)
  Receive Date: 20120601
  Receipt Date: 20120109
  Transmission Date: 20120825
  Serious: No
  Sender: FDA-Public Use
  Company Number: US-NOVEN-12US003908

PATIENT
  Sex: Female

DRUGS (1)
  1. DAYTRANA [Suspect]
     Indication: PRODUCT USED FOR UNKNOWN INDICATION
     Dosage: 30 MG, QD
     Route: 062
     Dates: start: 20111201, end: 20120105

REACTIONS (8)
  - APPLICATION SITE ERYTHEMA [None]
  - APPLICATION SITE PRURITUS [None]
  - APPLICATION SITE OEDEMA [None]
  - OFF LABEL USE [None]
  - DERMATITIS ALLERGIC [None]
  - INCORRECT DRUG ADMINISTRATION DURATION [None]
  - APPLICATION SITE VESICLES [None]
  - PRURITUS GENERALISED [None]
